FAERS Safety Report 20566259 (Version 2)
Quarter: 2022Q1

REPORT INFORMATION
  Report Type: Spontaneous
  Country: US (occurrence: US)
  Receive Date: 20220308
  Receipt Date: 20220310
  Transmission Date: 20220423
  Serious: No
  Sender: FDA-Public Use
  Company Number: US-NOVARTISTESTPH-NVSC2022US054126

PATIENT
  Sex: Female

DRUGS (1)
  1. ALBUTEROL SULFATE [Suspect]
     Active Substance: ALBUTEROL SULFATE
     Indication: Dyspnoea
     Dosage: UNK UNK, Q4H2SDO (2 INHALATIONS EVERY 4 HOURS AS NEEDED)
     Route: 065

REACTIONS (3)
  - Product delivery mechanism issue [Unknown]
  - Incorrect dose administered [Unknown]
  - Drug ineffective [Unknown]
